FAERS Safety Report 14694927 (Version 2)
Quarter: 2018Q2

REPORT INFORMATION
  Report Type: Report from Study
  Country: CA (occurrence: CA)
  Receive Date: 20180329
  Receipt Date: 20180425
  Transmission Date: 20180711
  Serious: Yes (Hospitalization)
  Sender: FDA-Public Use
  Company Number: CA-BAYER-2018-023569

PATIENT
  Age: 76 Year
  Sex: Male

DRUGS (1)
  1. STIVARGA [Suspect]
     Active Substance: REGORAFENIB
     Indication: COLORECTAL CANCER METASTATIC
     Dosage: 160 MG, DAILY
     Dates: start: 20180130, end: 201803

REACTIONS (9)
  - Hospitalisation [Not Recovered/Not Resolved]
  - Blood glucose increased [None]
  - Gastrointestinal pain [None]
  - Blood glucose increased [Recovering/Resolving]
  - Dysphonia [Unknown]
  - Hypertension [Unknown]
  - Drug ineffective [None]
  - Hospitalisation [Not Recovered/Not Resolved]
  - Abdominal discomfort [Unknown]

NARRATIVE: CASE EVENT DATE: 201801
